FAERS Safety Report 13421398 (Version 1)
Quarter: 2017Q2

REPORT INFORMATION
  Report Type: Spontaneous
  Country: US (occurrence: US)
  Receive Date: 20170410
  Receipt Date: 20170410
  Transmission Date: 20170830
  Serious: No
  Sender: FDA-Public Use
  Company Number: US-LUPIN PHARMACEUTICALS INC.-2016-04985

PATIENT
  Age: 19 Year
  Sex: Male

DRUGS (2)
  1. LORAZEPAM. [Suspect]
     Active Substance: LORAZEPAM
     Indication: CATATONIA
     Dosage: 1 MG,UNK,UNKNOWN
     Route: 042
  2. HALOPERIDOL. [Concomitant]
     Active Substance: HALOPERIDOL
     Indication: DELIRIUM
     Dosage: UNK UNK,UNK,UNKNOWN
     Route: 042

REACTIONS (3)
  - Disinhibition [Recovered/Resolved]
  - Agitation [Recovered/Resolved]
  - Paradoxical drug reaction [Recovered/Resolved]
